FAERS Safety Report 7393642-5 (Version None)
Quarter: 2011Q1

REPORT INFORMATION
  Report Type: 
  Country: None (occurrence: None)
  Receive Date: 20110331
  Receipt Date: 20110331
  Transmission Date: 20110831
  Serious: No
  Sender: FDA-Public Use
  Company Number: None

PATIENT

DRUGS (1)
  1. LISINOPRIL [Suspect]
     Dates: start: 20101110, end: 20110301

REACTIONS (5)
  - PRODUCT QUALITY ISSUE [None]
  - DEAFNESS [None]
  - NYSTAGMUS [None]
  - PRODUCT FORMULATION ISSUE [None]
  - TINNITUS [None]
